FAERS Safety Report 15423660 (Version 1)
Quarter: 2018Q3

REPORT INFORMATION
  Report Type: Spontaneous
  Country: BR (occurrence: BR)
  Receive Date: 20180925
  Receipt Date: 20180925
  Transmission Date: 20181010
  Serious: Yes (Other)
  Sender: FDA-Public Use
  Company Number: BR-CONCORDIA PHARMACEUTICALS INC.-GSH201809-003381

PATIENT
  Age: 51 Year
  Sex: Female

DRUGS (1)
  1. HYDROXYCHLOROQUINE [Suspect]
     Active Substance: HYDROXYCHLOROQUINE
     Indication: SYSTEMIC LUPUS ERYTHEMATOSUS
     Route: 065
     Dates: start: 2011

REACTIONS (3)
  - Tinnitus [Not Recovered/Not Resolved]
  - Ototoxicity [Not Recovered/Not Resolved]
  - Deafness bilateral [Not Recovered/Not Resolved]
